FAERS Safety Report 5823262-2 (Version None)
Quarter: 2008Q3

REPORT INFORMATION
  Report Type: 
  Country: None (occurrence: None)
  Receive Date: 20080724
  Receipt Date: 20080724
  Transmission Date: 20090109
  Serious: Yes (Hospitalization)
  Sender: FDA-Public Use
  Company Number: None

PATIENT
  Sex: Male
  Weight: 80.7 kg

DRUGS (3)
  1. TAXOL [Suspect]
     Dosage: 200 MG
     Dates: start: 20080715, end: 20080715
  2. COLACE [Concomitant]
  3. SENNOSIDES [Concomitant]

REACTIONS (9)
  - ABDOMINAL PAIN [None]
  - DIARRHOEA [None]
  - FLATULENCE [None]
  - GASTROENTERITIS VIRAL [None]
  - HYPERTENSIVE CRISIS [None]
  - OCCULT BLOOD POSITIVE [None]
  - RECTAL HAEMORRHAGE [None]
  - URINARY TRACT DISORDER [None]
  - VOMITING [None]
